FAERS Safety Report 24194080 (Version 1)
Quarter: 2024Q3

REPORT INFORMATION
  Report Type: Report from Study
  Country: US (occurrence: None)
  Receive Date: 20240809
  Receipt Date: 20240809
  Transmission Date: 20241016
  Serious: Yes (Hospitalization)
  Sender: ASTRAZENECA
  Company Number: 2022A411724

PATIENT
  Age: 27484 Day
  Sex: Female

DRUGS (1)
  1. FASENRA [Suspect]
     Active Substance: BENRALIZUMAB
     Dosage: INJECT 30 MG (1 PEN) UNDER THE SKIN AT WEEK 8, THEN EVERY 8 WEEKS THEREAFTER30.0MG/ML UNKNOWN
     Route: 058
     Dates: start: 20220919

REACTIONS (2)
  - Respiratory distress [Unknown]
  - Inappropriate schedule of product administration [Unknown]

NARRATIVE: CASE EVENT DATE: 20221014
